FAERS Safety Report 5599473-0 (Version None)
Quarter: 2008Q1

REPORT INFORMATION
  Report Type: 
  Country: None (occurrence: None)
  Receive Date: 20080117
  Receipt Date: 20080102
  Transmission Date: 20080703
  Serious: Yes (Life-Threatening)
  Sender: FDA-Public Use
  Company Number: 2008S1000035

PATIENT
  Age: 41 Year
  Sex: Male

DRUGS (5)
  1. MIRTAZAPINE [Suspect]
     Indication: ANXIETY
     Dosage: 45 MG; ; ORAL, 1 DF; ; ORAL
     Route: 048
     Dates: start: 20030822, end: 20051001
  2. MIRTAZAPINE [Suspect]
     Indication: DEPRESSION
     Dosage: 45 MG; ; ORAL, 1 DF; ; ORAL
     Route: 048
     Dates: start: 20030822, end: 20051001
  3. MIRTAZAPINE [Suspect]
     Indication: ANXIETY
     Dosage: 45 MG; ; ORAL, 1 DF; ; ORAL
     Route: 048
     Dates: start: 20060101, end: 20070314
  4. MIRTAZAPINE [Suspect]
     Indication: DEPRESSION
     Dosage: 45 MG; ; ORAL, 1 DF; ; ORAL
     Route: 048
     Dates: start: 20060101, end: 20070314
  5. QUETIAPINE FUMARATE [Suspect]
     Indication: DRUG USE FOR UNKNOWN INDICATION

REACTIONS (2)
  - ADJUSTMENT DISORDER [None]
  - DRUG INEFFECTIVE [None]
